FAERS Safety Report 6184459-8 (Version None)
Quarter: 2009Q2

REPORT INFORMATION
  Report Type: 
  Country: None (occurrence: None)
  Receive Date: 20090507
  Receipt Date: 20090507
  Transmission Date: 20091009
  Serious: Yes (Other)
  Sender: FDA-Public Use
  Company Number: None

PATIENT
  Age: 50 Year
  Sex: Female
  Weight: 72.5755 kg

DRUGS (4)
  1. HYDROCODONE BITARTRATE + ACETAMINOPHEN [Suspect]
     Indication: PAIN
     Dosage: 1-2 TAB 4 HOURS
     Dates: start: 20090301, end: 20090331
  2. OXYCODONE HCL [Suspect]
  3. VICODIN [Suspect]
  4. PERCOCET [Suspect]

REACTIONS (1)
  - ARTHRALGIA [None]
